FAERS Safety Report 6397505-3 (Version None)
Quarter: 2009Q4

REPORT INFORMATION
  Report Type: 
  Country: None (occurrence: None)
  Receive Date: 20091012
  Receipt Date: 20091001
  Transmission Date: 20100525
  Serious: Yes (Other)
  Sender: FDA-Public Use
  Company Number: BE-BRISTOL-MYERS SQUIBB COMPANY-14810592

PATIENT
  Age: 29 Year
  Sex: Female
  Weight: 74 kg

DRUGS (5)
  1. LYSODREN [Suspect]
     Indication: ADRENAL CARCINOMA
     Dates: start: 20090119
  2. CRESTOR [Concomitant]
     Dosage: 1 DF= 40(UNIT NOT SPEC)
  3. EZETROL [Concomitant]
     Dosage: 1 DF= 10(UNIT NOT SPEC)
  4. HYDROCORTISONE [Concomitant]
  5. FLUDROCORTISONE [Concomitant]

REACTIONS (1)
  - LIVER FUNCTION TEST ABNORMAL [None]
